FAERS Safety Report 8547227-5 (Version None)
Quarter: 2012Q3

REPORT INFORMATION
  Report Type: 
  Country: None (occurrence: None)
  Receive Date: 20120727
  Receipt Date: 20120330
  Transmission Date: 20120928
  Serious: No
  Sender: FDA-Public Use
  Company Number: US-ASTRAZENECA-2012SE14021

PATIENT
  Age: 38 Year
  Sex: Female
  Weight: 115.2 kg

DRUGS (7)
  1. XANAX [Concomitant]
     Indication: DEPRESSION
  2. PNV [Concomitant]
  3. AMARYL [Concomitant]
     Indication: TYPE 2 DIABETES MELLITUS
     Route: 048
     Dates: start: 20110225, end: 20120222
  4. BENADRYL [Concomitant]
     Dosage: 25 MG PRN QHS
  5. NOVOLIN 70/30 [Concomitant]
     Dosage: 70/30 4 AM AND 2 PM
  6. SEROQUEL [Suspect]
     Route: 048
     Dates: start: 20090502, end: 20120214
  7. PAXIL [Concomitant]
     Indication: DEPRESSION
     Route: 048
     Dates: start: 20110112, end: 20120122

REACTIONS (6)
  - OBESITY [None]
  - DEPRESSION [None]
  - MATERNAL EXPOSURE DURING PREGNANCY [None]
  - TYPE 2 DIABETES MELLITUS [None]
  - HYPOTHYROIDISM [None]
  - DIZZINESS [None]
